FAERS Safety Report 7124254-6 (Version None)
Quarter: 2010Q4

REPORT INFORMATION
  Report Type: 
  Country: None (occurrence: None)
  Receive Date: 20101126
  Receipt Date: 20101115
  Transmission Date: 20110411
  Serious: Yes (Hospitalization, Other)
  Sender: FDA-Public Use
  Company Number: PHHY2010US77814

PATIENT

DRUGS (12)
  1. DIOVAN [Suspect]
     Dosage: 1X DAY
  2. JANUMET [Concomitant]
  3. GLIMEPIRIDE [Concomitant]
  4. NEXIUM [Concomitant]
  5. FUROSEMIDE [Concomitant]
  6. CALCIUM [Concomitant]
  7. VITAMIN D [Concomitant]
  8. CELEBREX [Concomitant]
  9. SKELAXIN [Concomitant]
  10. ASPIRIN [Concomitant]
  11. TYLENOL (CAPLET) [Concomitant]
  12. RECLAST [Concomitant]

REACTIONS (5)
  - BLOOD PRESSURE INADEQUATELY CONTROLLED [None]
  - DIABETES MELLITUS [None]
  - GASTROOESOPHAGEAL REFLUX DISEASE [None]
  - KNEE DEFORMITY [None]
  - MUSCULOSKELETAL DISCOMFORT [None]
